FAERS Safety Report 8213211-4 (Version None)
Quarter: 2012Q1

REPORT INFORMATION
  Report Type: 
  Country: None (occurrence: None)
  Receive Date: 20120228
  Receipt Date: 20110503
  Transmission Date: 20120608
  Serious: Yes (Death, Other)
  Sender: FDA-Public Use
  Company Number: RB-26986-2011

PATIENT
  Sex: Female

DRUGS (12)
  1. PROAIR HFA [Concomitant]
  2. CHANTIX [Concomitant]
  3. EPIPEN [Concomitant]
  4. DEPO-PROVERA [Concomitant]
  5. CLONAZEPAM [Concomitant]
  6. SUBOXONE [Suspect]
     Indication: DRUG DEPENDENCE
     Dosage: (8 MG  SUBLINGUAL), (12 MG SUBLINGUAL), (20 MG SUBLINGUAL)
     Route: 060
     Dates: start: 20101014
  7. SUBOXONE [Suspect]
     Indication: DRUG DEPENDENCE
     Dosage: (8 MG  SUBLINGUAL), (12 MG SUBLINGUAL), (20 MG SUBLINGUAL)
     Route: 060
     Dates: start: 20100211, end: 20100214
  8. SUBOXONE [Suspect]
     Indication: DRUG DEPENDENCE
     Dosage: (8 MG  SUBLINGUAL), (12 MG SUBLINGUAL), (20 MG SUBLINGUAL)
     Route: 060
     Dates: start: 20100215, end: 20101013
  9. GABAPENTIN [Concomitant]
  10. CLONIDINE [Concomitant]
  11. PAXIL [Concomitant]
  12. SIMVASTATIN [Concomitant]

REACTIONS (1)
  - OVERDOSE [None]
